FAERS Safety Report 16370662 (Version 1)
Quarter: 2019Q2

REPORT INFORMATION
  Report Type: Spontaneous
  Country: BR (occurrence: BR)
  Receive Date: 20190530
  Receipt Date: 20190530
  Transmission Date: 20190711
  Serious: Yes (Hospitalization)
  Sender: FDA-Public Use
  Company Number: BR-AMGEN-BRASP2016031030

PATIENT
  Age: 72 Year
  Sex: Male
  Weight: 81 kg

DRUGS (6)
  1. ENALAPRIL [Concomitant]
     Active Substance: ENALAPRIL
     Dosage: 10 MG 1 CP IN THE MORNING
  2. ENALAPRIL [Concomitant]
     Active Substance: ENALAPRIL
     Dosage: 10 MG 1 CP IN THE MORNING
     Route: 065
  3. METHOTREXATE. [Concomitant]
     Active Substance: METHOTREXATE
     Dosage: UNK
  4. ENBREL [Suspect]
     Active Substance: ETANERCEPT
     Indication: PSORIASIS
     Dosage: UNK
     Route: 065
     Dates: start: 2000
  5. ENBREL [Suspect]
     Active Substance: ETANERCEPT
     Dosage: 50 MILLIGRAM, QWK
     Route: 065
     Dates: start: 201201, end: 201905
  6. ENBREL [Suspect]
     Active Substance: ETANERCEPT
     Dosage: 50 MILLIGRAM, QWK
     Route: 065
     Dates: start: 201301

REACTIONS (7)
  - Skin disorder [Recovering/Resolving]
  - Ear disorder [Recovered/Resolved]
  - Pruritus [Unknown]
  - Weight increased [Recovered/Resolved]
  - Ear infection [Recovered/Resolved]
  - Pyrexia [Recovered/Resolved]
  - Nasopharyngitis [Not Recovered/Not Resolved]

NARRATIVE: CASE EVENT DATE: 201905
